FAERS Safety Report 5601316-3 (Version None)
Quarter: 2008Q1

REPORT INFORMATION
  Report Type: 
  Country: None (occurrence: None)
  Receive Date: 20080124
  Receipt Date: 20080116
  Transmission Date: 20080703
  Serious: Yes (Other)
  Sender: FDA-Public Use
  Company Number: B0504691A

PATIENT
  Age: 39 Year
  Sex: Female

DRUGS (3)
  1. WELLBUTRIN XR [Suspect]
     Indication: DEPRESSION
     Dosage: 300MG PER DAY
     Route: 048
     Dates: start: 20071015, end: 20071228
  2. BUSPIRONE HYDROCHLORIDE [Concomitant]
  3. HYDROXYZINE [Concomitant]

REACTIONS (2)
  - OBESITY [None]
  - URINARY RETENTION [None]
